FAERS Safety Report 20913322 (Version 1)
Quarter: 2022Q2

REPORT INFORMATION
  Report Type: Report from Study
  Country: BR (occurrence: BR)
  Receive Date: 20220603
  Receipt Date: 20220603
  Transmission Date: 20220721
  Serious: Yes (Other)
  Sender: FDA-Public Use
  Company Number: BR-UCBSA-2022031148

PATIENT
  Age: 44 Year
  Sex: Male
  Weight: 82 kg

DRUGS (3)
  1. CERTOLIZUMAB PEGOL [Suspect]
     Active Substance: CERTOLIZUMAB PEGOL
     Indication: Rheumatoid arthritis
     Dosage: 200 MILLIGRAM, EV 15 DAYS
     Route: 058
     Dates: start: 20220321
  2. ACETAMINOPHEN [Concomitant]
     Active Substance: ACETAMINOPHEN
     Indication: Influenza
     Dosage: 1 DOSAGE FORM, ONCE DAILY (QD)
     Route: 048
     Dates: start: 202205
  3. LOSARTAN [Concomitant]
     Active Substance: LOSARTAN
     Indication: Hypertension
     Dosage: 1 DOSAGE FORM, ONCE DAILY (QD)
     Route: 048

REACTIONS (3)
  - Immunodeficiency [Not Recovered/Not Resolved]
  - Influenza [Not Recovered/Not Resolved]
  - Product dose omission issue [Unknown]

NARRATIVE: CASE EVENT DATE: 20220516
